FAERS Safety Report 5351990-4 (Version None)
Quarter: 2007Q2

REPORT INFORMATION
  Report Type: 
  Country: None (occurrence: None)
  Receive Date: 20070611
  Receipt Date: 20070531
  Transmission Date: 20071010
  Serious: Yes (Hospitalization, Other)
  Sender: FDA-Public Use
  Company Number: PHHO2006US11467

PATIENT
  Age: 75 Year
  Sex: Male
  Weight: 104.5 kg

DRUGS (11)
  1. IMATINIB MESYLATE [Suspect]
     Indication: PROSTATE CANCER
     Dosage: 132MG IN 250CC NSS
     Route: 048
     Dates: start: 20060403, end: 20060710
  2. NEULASTA [Concomitant]
  3. ARANESP [Concomitant]
  4. ENALAPRIL MALEATE [Concomitant]
  5. LEVOTHYROXINE SODIUM [Concomitant]
  6. GLIPIZIDE [Concomitant]
  7. TAXOTERE [Suspect]
  8. ELAVIL [Concomitant]
  9. LUPRON [Concomitant]
     Indication: PROSTATE CANCER
  10. AMBIEN [Concomitant]
     Indication: INSOMNIA
  11. AMITRIPTYLINE HCL [Concomitant]

REACTIONS (22)
  - ABDOMINAL PAIN UPPER [None]
  - ASTHENIA [None]
  - CHEST PAIN [None]
  - COUGH [None]
  - DECREASED APPETITE [None]
  - DEHYDRATION [None]
  - DIARRHOEA [None]
  - DIZZINESS [None]
  - DYSPHAGIA [None]
  - DYSPNOEA [None]
  - HIATUS HERNIA [None]
  - LEUKOCYTOSIS [None]
  - LOSS OF CONSCIOUSNESS [None]
  - NAUSEA [None]
  - PANCREATIC ENZYMES INCREASED [None]
  - PANCREATITIS [None]
  - RECTAL HAEMORRHAGE [None]
  - REFLUX OESOPHAGITIS [None]
  - SINUS TACHYCARDIA [None]
  - SPUTUM DISCOLOURED [None]
  - VOMITING [None]
  - WHEEZING [None]
